FAERS Safety Report 8770049 (Version 2)
Quarter: 2012Q4

REPORT INFORMATION
  Report Type: 
  Country: US (occurrence: US)
  Receive Date: 20120906
  Receipt Date: 20120913
  Transmission Date: 20130627
  Serious: Yes (Death)
  Sender: FDA-Public Use
  Company Number: US-GILEAD-2012-0060673

PATIENT
  Sex: Male

DRUGS (1)
  1. LETAIRIS [Suspect]
     Indication: PULMONARY ARTERIAL HYPERTENSION
     Dosage: 10 mg, UNK
     Route: 048
     Dates: start: 2008

REACTIONS (4)
  - Cor pulmonale [Fatal]
  - Hyponatraemia [Fatal]
  - Right ventricular failure [Fatal]
  - Bronchopulmonary aspergillosis [Fatal]
